FAERS Safety Report 14167482 (Version 2)
Quarter: 2017Q4

REPORT INFORMATION
  Report Type: Report from Study
  Country: US (occurrence: US)
  Receive Date: 20171107
  Receipt Date: 20171206
  Transmission Date: 20180321
  Serious: Yes (Hospitalization)
  Sender: FDA-Public Use
  Company Number: US-EISAI MEDICAL RESEARCH-EC-2017-025305

PATIENT
  Age: 59 Year
  Sex: Female

DRUGS (5)
  1. LENVIMA [Suspect]
     Active Substance: LENVATINIB
     Route: 048
     Dates: start: 20170812, end: 201710
  2. LENVIMA [Suspect]
     Active Substance: LENVATINIB
     Indication: THYROID CANCER
     Route: 048
     Dates: start: 20170215, end: 2017
  3. IMODIUM [Concomitant]
     Active Substance: LOPERAMIDE HYDROCHLORIDE
  4. LENVIMA [Suspect]
     Active Substance: LENVATINIB
     Route: 048
     Dates: start: 20170428, end: 2017
  5. LENVIMA [Suspect]
     Active Substance: LENVATINIB
     Indication: METASTASIS
     Route: 048
     Dates: start: 201703, end: 2017

REACTIONS (18)
  - Hypertension [Unknown]
  - Blood calcium decreased [Not Recovered/Not Resolved]
  - Malignant neoplasm progression [Not Recovered/Not Resolved]
  - Cellulitis [Unknown]
  - Ulcer [Unknown]
  - Musculoskeletal pain [Unknown]
  - Pain [Unknown]
  - Muscle twitching [Unknown]
  - Alopecia [Recovering/Resolving]
  - Impaired healing [Recovering/Resolving]
  - Pneumonia [Unknown]
  - Sepsis [Unknown]
  - Diarrhoea [Recovered/Resolved]
  - Adrenal insufficiency [Unknown]
  - Blood potassium increased [Not Recovered/Not Resolved]
  - Decreased appetite [Not Recovered/Not Resolved]
  - Rash [Unknown]
  - Hypoglycaemia [Unknown]

NARRATIVE: CASE EVENT DATE: 2017
